FAERS Safety Report 5040834-6 (Version None)
Quarter: 2006Q2

REPORT INFORMATION
  Report Type: 
  Country: None (occurrence: None)
  Receive Date: 20060601
  Receipt Date: 20060302
  Transmission Date: 20061013
  Serious: No
  Sender: FDA-Public Use
  Company Number: 2006PV009619

PATIENT
  Sex: Female

DRUGS (1)
  1. BYETTA [Suspect]
     Indication: DRUG USE FOR UNKNOWN INDICATION
     Dosage: 10 MCG;SC
     Route: 058

REACTIONS (5)
  - CHILLS [None]
  - ERUCTATION [None]
  - HYPOAESTHESIA [None]
  - IRRITABILITY [None]
  - LOSS OF CONSCIOUSNESS [None]
